FAERS Safety Report 5407030-1 (Version None)
Quarter: 2007Q3

REPORT INFORMATION
  Report Type: 
  Country: None (occurrence: None)
  Receive Date: 20070807
  Receipt Date: 20070731
  Transmission Date: 20080115
  Serious: Yes (Hospitalization)
  Sender: FDA-Public Use
  Company Number: US-AMGEN-US236634

PATIENT
  Sex: Male

DRUGS (3)
  1. VECTIBIX [Suspect]
     Indication: COLORECTAL CANCER
     Route: 065
     Dates: start: 20070620, end: 20070701
  2. 5-FU [Concomitant]
     Route: 065
  3. ERBITUX [Concomitant]
     Route: 065
     Dates: end: 20070101

REACTIONS (3)
  - SEPTIC SHOCK [None]
  - SKIN REACTION [None]
  - THROMBOSIS [None]
